FAERS Safety Report 6351394-1 (Version None)
Quarter: 2009Q3

REPORT INFORMATION
  Report Type: 
  Country: None (occurrence: None)
  Receive Date: 20090912
  Receipt Date: 20090622
  Transmission Date: 20100115
  Serious: No
  Sender: FDA-Public Use
  Company Number: US-ABBOTT-07P-163-0415422-00

PATIENT
  Sex: Female
  Weight: 125 kg

DRUGS (10)
  1. HUMIRA [Suspect]
     Indication: PSORIATIC ARTHROPATHY
     Route: 058
     Dates: start: 20070814
  2. CARVEDILOL [Concomitant]
     Indication: CARDIOMYOPATHY
     Route: 048
  3. LISINOPRIL [Concomitant]
     Indication: HYPERTENSION
     Route: 048
  4. BENICAR HCT [Concomitant]
     Indication: HYPERTENSION
     Dosage: 40/12.5 MG
     Route: 048
  5. PREDNISONE [Concomitant]
     Indication: PSORIATIC ARTHROPATHY
     Route: 048
  6. SERTRALINE HCL [Concomitant]
     Indication: ANXIETY
     Route: 048
  7. STROVITE [Concomitant]
     Indication: VITAMIN SUPPLEMENTATION
     Route: 048
  8. HYDROCHLOROTHIAZIDE [Concomitant]
     Indication: CARDIOMYOPATHY
     Route: 048
  9. KLOR-CON [Concomitant]
     Indication: MINERAL SUPPLEMENTATION
     Route: 048
  10. METHOTREXATE [Concomitant]
     Indication: PSORIATIC ARTHROPATHY
     Route: 058

REACTIONS (2)
  - INCORRECT DOSE ADMINISTERED [None]
  - WRONG TECHNIQUE IN DRUG USAGE PROCESS [None]
